FAERS Safety Report 6996902-2 (Version None)
Quarter: 2010Q3

REPORT INFORMATION
  Report Type: 
  Country: None (occurrence: None)
  Receive Date: 20100918
  Receipt Date: 20090908
  Transmission Date: 20110219
  Serious: No
  Sender: FDA-Public Use
  Company Number: US-WYE-H10438209

PATIENT
  Sex: Female
  Weight: 72.64 kg

DRUGS (3)
  1. EFFEXOR XR [Suspect]
     Indication: DEPRESSION
     Route: 048
     Dates: start: 20040101, end: 20080101
  2. EFFEXOR XR [Suspect]
     Route: 048
     Dates: start: 20080101
  3. EFFEXOR XR [Suspect]
     Dosage: ATTEMPTED TO DISCONTINUE EFFEXOR XR THREE TIMES
     Route: 048
     Dates: start: 20080101, end: 20080101

REACTIONS (6)
  - DIARRHOEA [None]
  - DRUG EFFECT DECREASED [None]
  - DRUG WITHDRAWAL SYNDROME [None]
  - HEADACHE [None]
  - NAUSEA [None]
  - PANIC ATTACK [None]
